FAERS Safety Report 4715140-7 (Version None)
Quarter: 2005Q3

REPORT INFORMATION
  Report Type: 
  Country: None (occurrence: None)
  Receive Date: 20050715
  Receipt Date: 20050713
  Transmission Date: 20060218
  Serious: Yes (Hospitalization)
  Sender: FDA-Public Use
  Company Number: US-GLAXOSMITHKLINE-A0566119A

PATIENT
  Age: 8 Year
  Sex: Male

DRUGS (1)
  1. LAMICTAL [Suspect]
     Route: 048
     Dates: start: 20040601

REACTIONS (5)
  - ASTHENIA [None]
  - BALANCE DISORDER [None]
  - CONVULSION [None]
  - DRUG TOXICITY [None]
  - DYSKINESIA [None]
